FAERS Safety Report 10055256 (Version 1)
Quarter: 2014Q2

REPORT INFORMATION
  Report Type: Spontaneous
  Country: GB (occurrence: GB)
  Receive Date: 20140403
  Receipt Date: 20140403
  Transmission Date: 20141212
  Serious: Yes (Other)
  Sender: FDA-Public Use
  Company Number: GB-JNJFOC-20140400462

PATIENT
  Age: 52 Year
  Sex: Female

DRUGS (1)
  1. NICORETTE GUM [Suspect]
     Indication: SMOKING CESSATION THERAPY
     Route: 048

REACTIONS (8)
  - Mitral valve disease [Unknown]
  - Mental disorder [Unknown]
  - Dependence [Unknown]
  - Blood pressure increased [Unknown]
  - Blood cholesterol increased [Unknown]
  - Tooth loss [Unknown]
  - Dental caries [Unknown]
  - Activities of daily living impaired [Unknown]
